FAERS Safety Report 24393533 (Version 1)
Quarter: 2024Q4

REPORT INFORMATION
  Report Type: Spontaneous
  Country: US (occurrence: None)
  Receive Date: 20241003
  Receipt Date: 20241003
  Transmission Date: 20250115
  Serious: Yes (Hospitalization)
  Sender: Public
  Company Number: None

PATIENT
  Sex: Male

DRUGS (3)
  1. PROCRIT [Suspect]
     Active Substance: ERYTHROPOIETIN
     Dosage: OTHER FREQUENCY : EVERY TUESDAY AND FRIDAY;?
     Route: 058
     Dates: start: 20240314
  2. FULPHILA [Concomitant]
     Active Substance: PEGFILGRASTIM-JMDB
  3. PROCRIT [Concomitant]
     Active Substance: ERYTHROPOIETIN

REACTIONS (2)
  - Hospitalisation [None]
  - Intentional dose omission [None]
